FAERS Safety Report 7135968-6 (Version None)
Quarter: 2010Q4

REPORT INFORMATION
  Report Type: 
  Country: None (occurrence: None)
  Receive Date: 20101204
  Receipt Date: 20101118
  Transmission Date: 20110411
  Serious: Yes (Hospitalization)
  Sender: FDA-Public Use
  Company Number: SE-BAYER-2010-000255

PATIENT

DRUGS (5)
  1. NAPROXEN SODIUM HIGH DOSE (} 220 MG) [Suspect]
     Indication: PRODUCT USED FOR UNKNOWN INDICATION
     Dosage: 750 MGD
     Route: 048
     Dates: start: 20101006, end: 20101016
  2. DYGRATYL [Suspect]
     Indication: HYPOPARATHYROIDISM
     Dosage: UNK
     Route: 048
     Dates: end: 20101014
  3. TRAMADOL HCL [Concomitant]
  4. ACETAMINOPHEN [Concomitant]
  5. LEVOTHYROXINE SODIUM [Concomitant]

REACTIONS (3)
  - BLOOD CREATININE INCREASED [None]
  - HYPERCALCAEMIA [None]
  - PERSONALITY DISORDER [None]
